FAERS Safety Report 10923084 (Version 1)
Quarter: 2015Q1

REPORT INFORMATION
  Report Type: Spontaneous
  Country: JP (occurrence: JP)
  Receive Date: 20150317
  Receipt Date: 20150317
  Transmission Date: 20150721
  Serious: Yes (Death)
  Sender: FDA-Public Use
  Company Number: JP-ELI_LILLY_AND_COMPANY-JP201503003105

PATIENT
  Age: 49 Year
  Sex: Female

DRUGS (11)
  1. HALCION [Concomitant]
     Active Substance: TRIAZOLAM
  2. TRIAZOLAM. [Concomitant]
     Active Substance: TRIAZOLAM
  3. TASMOLIN                           /00079501/ [Concomitant]
     Active Substance: BIPERIDEN
  4. LORAZEPAM. [Concomitant]
     Active Substance: LORAZEPAM
  5. ZYPREXA [Suspect]
     Active Substance: OLANZAPINE
     Indication: PRODUCT USED FOR UNKNOWN INDICATION
     Route: 048
  6. ESTAZOLAM AMEL [Concomitant]
  7. STADORF [Concomitant]
  8. EURODIN                            /00425901/ [Concomitant]
     Active Substance: ESTAZOLAM
  9. LACTOSE [Concomitant]
     Active Substance: LACTOSE
  10. LIMAS [Concomitant]
     Active Substance: LITHIUM CARBONATE
  11. STADORF [Concomitant]

REACTIONS (2)
  - Abnormal behaviour [Unknown]
  - Death [Fatal]
